FAERS Safety Report 5374370-4 (Version None)
Quarter: 2007Q2

REPORT INFORMATION
  Report Type: 
  Country: None (occurrence: None)
  Receive Date: 20070625
  Receipt Date: 20070614
  Transmission Date: 20071010
  Serious: Yes (Disabling)
  Sender: FDA-Public Use
  Company Number: 16819

PATIENT
  Age: 68 Year
  Weight: 60.8 kg

DRUGS (3)
  1. CARBOPLATIN [Suspect]
     Indication: LUNG NEOPLASM MALIGNANT
  2. MADOPAR /00349201/ [Suspect]
     Indication: PARKINSON'S DISEASE
  3. ROPINIROLE HCL [Suspect]
     Indication: PARKINSON'S DISEASE

REACTIONS (4)
  - CONDITION AGGRAVATED [None]
  - DRUG EFFECT DECREASED [None]
  - PARKINSON'S DISEASE [None]
  - THERAPEUTIC RESPONSE UNEXPECTED [None]
